FAERS Safety Report 10079109 (Version 1)
Quarter: 2014Q2

REPORT INFORMATION
  Report Type: Spontaneous
  Country: US (occurrence: None)
  Receive Date: 20140414
  Receipt Date: 20140414
  Transmission Date: 20141212
  Serious: Yes (Death)
  Sender: FDA-Public Use
  Company Number: None

PATIENT
  Age: 78 Year
  Sex: Female
  Weight: 52.6 kg

DRUGS (1)
  1. DABIGATRAN [Suspect]
     Route: 048

REACTIONS (4)
  - Pulmonary alveolar haemorrhage [None]
  - Renal impairment [None]
  - Catheter site haemorrhage [None]
  - Respiratory distress [None]
